FAERS Safety Report 16343999 (Version 1)
Quarter: 2019Q2

REPORT INFORMATION
  Report Type: Spontaneous
  Country: FR (occurrence: FR)
  Receive Date: 20190522
  Receipt Date: 20190522
  Transmission Date: 20190711
  Serious: Yes (Death, Other)
  Sender: FDA-Public Use
  Company Number: FR-ASTRAZENECA-2019SE75643

PATIENT
  Age: 19 Year
  Sex: Female
  Weight: 47 kg

DRUGS (2)
  1. IMFINZI [Suspect]
     Active Substance: DURVALUMAB
     Indication: ANGIOSARCOMA
     Route: 042
     Dates: start: 20190429
  2. IMFINZI [Suspect]
     Active Substance: DURVALUMAB
     Indication: METASTASES TO LUNG
     Route: 042
     Dates: start: 20190429

REACTIONS (2)
  - Condition aggravated [Unknown]
  - Superior vena cava syndrome [Fatal]
